FAERS Safety Report 7824791-2 (Version None)
Quarter: 2011Q4

REPORT INFORMATION
  Report Type: 
  Country: None (occurrence: None)
  Receive Date: 20111019
  Receipt Date: 20110218
  Transmission Date: 20120403
  Serious: No
  Sender: FDA-Public Use
  Company Number: US-BRISTOL-MYERS SQUIBB COMPANY-15509300

PATIENT
  Age: 63 Year
  Sex: Female
  Weight: 112 kg

DRUGS (4)
  1. AVALIDE [Suspect]
     Indication: HYPERTENSION
     Dosage: AVALIDE 300/25; DURATION OF THERAPY:2YRS AGO, ALSO TAKEN AS CONMED
  2. CALCIUM CARBONATE [Concomitant]
  3. PREVACID [Concomitant]
     Dosage: PREVACID  OTC
  4. VITAMIN D [Concomitant]

REACTIONS (1)
  - ABDOMINAL PAIN UPPER [None]
